FAERS Safety Report 12658634 (Version 1)
Quarter: 2016Q3

REPORT INFORMATION
  Report Type: Spontaneous
  Country: US (occurrence: None)
  Receive Date: 20160816
  Receipt Date: 20160816
  Transmission Date: 20161109
  Serious: Yes (Life-Threatening)
  Sender: FDA-Public Use
  Company Number: None

PATIENT
  Age: 64 Year
  Sex: Male
  Weight: 95 kg

DRUGS (1)
  1. MOXIFLOXACIN. [Suspect]
     Active Substance: MOXIFLOXACIN
     Indication: PNEUMONIA
     Dosage: 1 TAB EVERY DAY PO
     Route: 048
     Dates: start: 20081103, end: 20101227

REACTIONS (9)
  - Agitation [None]
  - Nausea [None]
  - Dyspnoea [None]
  - Chest pain [None]
  - Bronchitis [None]
  - Swelling [None]
  - Vomiting [None]
  - Hypotension [None]
  - Swelling face [None]

NARRATIVE: CASE EVENT DATE: 20101227
